FAERS Safety Report 14015366 (Version 1)
Quarter: 2017Q3

REPORT INFORMATION
  Report Type: Spontaneous
  Country: CH (occurrence: CH)
  Receive Date: 20170927
  Receipt Date: 20170927
  Transmission Date: 20171128
  Serious: Yes (Other)
  Sender: FDA-Public Use
  Company Number: CH-AMGEN-CHESP2017142714

PATIENT
  Age: 53 Year
  Sex: Male
  Weight: 83 kg

DRUGS (9)
  1. REVLIMID [Concomitant]
     Active Substance: LENALIDOMIDE
     Dosage: 15 MG, UNK
     Dates: start: 201501
  2. FORTECORTIN [Concomitant]
     Active Substance: DEXAMETHASONE
     Dosage: 20 MG, QWK
     Dates: start: 201501
  3. FORTECORTIN [Concomitant]
     Active Substance: DEXAMETHASONE
     Dosage: 40 MG, DAY 1, 8, AND 15
     Dates: start: 201508, end: 201603
  4. KYPROLIS [Suspect]
     Active Substance: CARFILZOMIB
     Indication: PRODUCT USED FOR UNKNOWN INDICATION
     Dosage: 56 MG/M2, TOTAL 115.36MG 1, 2, 8, 9, 15, 16, EVERY 3 WEEKS
     Route: 065
     Dates: start: 201508, end: 201603
  5. ARANESP [Suspect]
     Active Substance: DARBEPOETIN ALFA
     Indication: PRODUCT USED FOR UNKNOWN INDICATION
     Dosage: 500 MUG, Q3WK
     Route: 058
     Dates: start: 201210
  6. XGEVA [Suspect]
     Active Substance: DENOSUMAB
     Indication: PRODUCT USED FOR UNKNOWN INDICATION
     Dosage: 120 MG, Q4WK
     Route: 065
     Dates: start: 201503
  7. REVLIMID [Concomitant]
     Active Substance: LENALIDOMIDE
     Indication: PRODUCT USED FOR UNKNOWN INDICATION
     Dosage: 15 MG, QD
     Dates: start: 201209
  8. REVLIMID [Concomitant]
     Active Substance: LENALIDOMIDE
     Dosage: 25 MG, DAILY FOR 3 OF 4 WEEKS
     Dates: start: 201502
  9. FORTECORTIN [Concomitant]
     Active Substance: DEXAMETHASONE
     Dosage: 20 MG, QWK
     Dates: start: 201502

REACTIONS (10)
  - Neuropathy peripheral [Unknown]
  - Cough [Unknown]
  - Escherichia infection [Unknown]
  - Candida infection [Unknown]
  - Gastritis [Unknown]
  - Insomnia [Unknown]
  - Muscle spasms [Unknown]
  - Nausea [Unknown]
  - Asthenia [Unknown]
  - Pyrexia [Unknown]
